FAERS Safety Report 4322407-3 (Version None)
Quarter: 2004Q1

REPORT INFORMATION
  Report Type: 
  Country: None (occurrence: None)
  Receive Date: 20040323
  Receipt Date: 20040323
  Transmission Date: 20041129
  Serious: No
  Sender: FDA-Public Use
  Company Number: None

PATIENT
  Sex: Female
  Weight: 57.879 kg

DRUGS (3)
  1. PLAVIX [Suspect]
     Indication: TRANSIENT ISCHAEMIC ATTACK
     Dosage: 1 TABLET X 1 DOSE ORAL
     Route: 048
     Dates: start: 20040318, end: 20040318
  2. LABETALOL HCL [Concomitant]
  3. TIMOLOL MALEATE [Concomitant]

REACTIONS (1)
  - THROMBOCYTOPENIA [None]
